FAERS Safety Report 7475751-5 (Version None)
Quarter: 2011Q2

REPORT INFORMATION
  Report Type: 
  Country: None (occurrence: None)
  Receive Date: 20110512
  Receipt Date: 20101210
  Transmission Date: 20111010
  Serious: Yes (Death)
  Sender: FDA-Public Use
  Company Number: PHHY2010NL92114

PATIENT
  Sex: Male

DRUGS (1)
  1. ZOMETA [Suspect]
     Indication: PROSTATE CANCER METASTATIC
     Dosage: 4 MG/5 ML,ONCE EVERY 12 WEEKS
     Dates: start: 20091204, end: 20101210

REACTIONS (1)
  - GENERAL PHYSICAL HEALTH DETERIORATION [None]
